FAERS Safety Report 6988851-0 (Version None)
Quarter: 2010Q3

REPORT INFORMATION
  Report Type: 
  Country: None (occurrence: None)
  Receive Date: 20100916
  Receipt Date: 20100901
  Transmission Date: 20110219
  Serious: No
  Sender: FDA-Public Use
  Company Number: US-PFIZER INC-2010111209

PATIENT
  Sex: Male
  Weight: 83.447 kg

DRUGS (2)
  1. LYRICA [Suspect]
     Indication: NEUROPATHY PERIPHERAL
     Dosage: UNK, THRICE DAILY
     Route: 048
     Dates: start: 20100801
  2. TRUVADA [Concomitant]
     Indication: HIV TEST POSITIVE
     Dosage: UNK

REACTIONS (1)
  - LIBIDO DECREASED [None]
